FAERS Safety Report 6070868-4 (Version None)
Quarter: 2009Q1

REPORT INFORMATION
  Report Type: 
  Country: None (occurrence: None)
  Receive Date: 20090209
  Receipt Date: 20081021
  Transmission Date: 20090719
  Serious: No
  Sender: FDA-Public Use
  Company Number: A0752791A

PATIENT
  Age: 79 Year
  Sex: Female

DRUGS (10)
  1. PAROXETINE HCL [Suspect]
     Dosage: 40MG PER DAY
     Route: 048
     Dates: start: 20070101, end: 20070301
  2. PAXIL [Concomitant]
  3. COREG [Concomitant]
  4. BENALAPRIL [Concomitant]
  5. ATENOLOL [Concomitant]
  6. LIPITOR [Concomitant]
  7. SYNTHROID [Concomitant]
  8. LOVAZA [Concomitant]
  9. CALTRATE [Concomitant]
  10. CENTRUM SILVER [Concomitant]

REACTIONS (4)
  - ANXIETY [None]
  - DEPRESSION [None]
  - DRUG INEFFECTIVE [None]
  - TENSION [None]
